FAERS Safety Report 23282644 (Version 2)
Quarter: 2024Q1

REPORT INFORMATION
  Report Type: Spontaneous
  Country: JP (occurrence: JP)
  Receive Date: 20231211
  Receipt Date: 20240102
  Transmission Date: 20240410
  Serious: Yes (Other)
  Sender: FDA-Public Use
  Company Number: JP-UCBSA-2023058088

PATIENT
  Age: 2 Decade
  Sex: Female

DRUGS (2)
  1. LEVETIRACETAM [Suspect]
     Active Substance: LEVETIRACETAM
     Indication: Epilepsy
     Dosage: 1000 MILLIGRAM
     Route: 048
     Dates: start: 20230807
  2. VIMPAT [Suspect]
     Active Substance: LACOSAMIDE
     Indication: Seizure
     Dosage: 50 MILLIGRAM
     Dates: start: 2023

REACTIONS (1)
  - Encephalitis autoimmune [Recovering/Resolving]

NARRATIVE: CASE EVENT DATE: 20230101
